FAERS Safety Report 9335634 (Version 3)
Quarter: 2013Q4

REPORT INFORMATION
  Report Type: Spontaneous
  Country: US (occurrence: US)
  Receive Date: 20130605
  Receipt Date: 20131127
  Transmission Date: 20140711
  Serious: Yes (Hospitalization)
  Sender: FDA-Public Use
  Company Number: US-B.I. PHARMACEUTICALS,INC./RIDGEFIELD-2013-BI-15742BP

PATIENT
  Sex: Female
  Weight: 79.38 kg

DRUGS (14)
  1. PRADAXA [Suspect]
     Indication: ATRIAL FIBRILLATION
     Dosage: 300 MG
     Route: 048
     Dates: start: 20110617, end: 20110621
  2. LASIX [Concomitant]
     Dosage: 40 MG
     Route: 048
     Dates: start: 2009
  3. LISINOPRIL [Concomitant]
     Dosage: 20 MG
     Route: 048
     Dates: start: 201011, end: 201107
  4. MULTAQ [Concomitant]
     Dosage: 400 MG
     Route: 048
     Dates: start: 201007
  5. POTASSIUM CHLORIDE [Concomitant]
     Dosage: 20 MEQ
     Route: 048
     Dates: start: 201011
  6. SPIRIVA [Concomitant]
     Dosage: 1 PUF
     Route: 055
     Dates: start: 201007
  7. AMBIEN [Concomitant]
     Dosage: 10 MG
     Route: 048
     Dates: start: 201008
  8. ASPIRIN [Concomitant]
     Dosage: 81 MG
     Route: 048
  9. MULTIVITAMINS [Concomitant]
     Route: 048
  10. MUCINEX [Concomitant]
     Dosage: 1200 MG
     Route: 048
  11. OMEGA 3 FATTY ACIDS [Concomitant]
     Dosage: 1200 MG
     Route: 048
  12. CALCIUM [Concomitant]
     Dosage: 600 MG
     Route: 048
  13. ADVAIR DISKUS [Concomitant]
     Route: 055
  14. VENTOLIN [Concomitant]
     Route: 055

REACTIONS (3)
  - Gastrointestinal haemorrhage [Unknown]
  - Coagulopathy [Unknown]
  - Renal failure acute [Recovered/Resolved]
